FAERS Safety Report 6790966-7 (Version None)
Quarter: 2010Q2

REPORT INFORMATION
  Report Type: 
  Country: None (occurrence: None)
  Receive Date: 20100624
  Receipt Date: 20100618
  Transmission Date: 20101027
  Serious: Yes (Other)
  Sender: FDA-Public Use
  Company Number: US-MERCK-1006USA03226

PATIENT
  Age: 7 Year
  Sex: Male

DRUGS (2)
  1. SINGULAIR [Suspect]
     Indication: EOSINOPHILIC OESOPHAGITIS
     Route: 048
  2. SINGULAIR [Suspect]
     Indication: SEASONAL ALLERGY
     Route: 048

REACTIONS (2)
  - OFF LABEL USE [None]
  - SUICIDAL IDEATION [None]
